FAERS Safety Report 9315489 (Version 4)
Quarter: 2013Q3

REPORT INFORMATION
  Report Type: Spontaneous
  Country: JP (occurrence: JP)
  Receive Date: 20130529
  Receipt Date: 20130723
  Transmission Date: 20140515
  Serious: Yes (Hospitalization, Other)
  Sender: FDA-Public Use
  Company Number: JP-B.I. PHARMACEUTICALS,INC./RIDGEFIELD-2013-BI-14588NB

PATIENT
  Age: 70 Year
  Sex: Male
  Weight: 59.8 kg

DRUGS (7)
  1. PRAZAXA [Suspect]
     Indication: ATRIAL FIBRILLATION
     Dosage: 300 MG
     Route: 048
     Dates: start: 20130220, end: 20130509
  2. BEPRICOR [Suspect]
     Indication: ATRIAL FIBRILLATION
     Dosage: 100 MG
     Route: 048
     Dates: start: 20130301, end: 20130517
  3. SUNRYTHM [Concomitant]
     Indication: ATRIAL FIBRILLATION
     Route: 065
     Dates: start: 20130220, end: 20130301
  4. PREMINENT [Concomitant]
     Indication: HYPERLIPIDAEMIA
     Route: 065
  5. AMLODIPINE [Concomitant]
     Indication: HYPERTENSION
     Dosage: 5 MG
     Route: 048
  6. ATORVASTATIN [Concomitant]
     Indication: HYPERLIPIDAEMIA
     Dosage: 10 MCG
     Route: 048
  7. GANATON [Concomitant]
     Indication: ABDOMINAL DISCOMFORT
     Dosage: 100 MG
     Route: 048
     Dates: start: 20130301, end: 20130509

REACTIONS (4)
  - Interstitial lung disease [Not Recovered/Not Resolved]
  - Decreased appetite [Not Recovered/Not Resolved]
  - Hepatic function abnormal [Recovered/Resolved]
  - C-reactive protein increased [Not Recovered/Not Resolved]
